FAERS Safety Report 5415335-3 (Version None)
Quarter: 2007Q3

REPORT INFORMATION
  Report Type: 
  Country: None (occurrence: None)
  Receive Date: 20070813
  Receipt Date: 20070720
  Transmission Date: 20080115
  Serious: Yes (Other)
  Sender: FDA-Public Use
  Company Number: GXKR2007GB06292

PATIENT
  Age: 71 Year
  Sex: Male

DRUGS (4)
  1. TRAMADOL HCL [Suspect]
     Indication: OSTEOARTHRITIS
     Dosage: 200 MG, BID, ORAL
     Route: 048
     Dates: start: 20051208, end: 20060630
  2. CODEINE PHOSPHATE AND ACETAMINOPHEN [Concomitant]
  3. DIFFLAM (BENZYDAMINE HYDROCHLORIDE) [Concomitant]
  4. NAPROXEN [Concomitant]

REACTIONS (4)
  - DRUG WITHDRAWAL SYNDROME [None]
  - FEELING COLD [None]
  - INFLUENZA LIKE ILLNESS [None]
  - PAIN [None]
